FAERS Safety Report 9186254 (Version 2)
Quarter: 2013Q2

REPORT INFORMATION
  Report Type: Spontaneous
  Country: US (occurrence: US)
  Receive Date: 20130325
  Receipt Date: 20130503
  Transmission Date: 20140414
  Serious: Yes (Death, Life-Threatening, Hospitalization)
  Sender: FDA-Public Use
  Company Number: US-PFIZER INC-2013093331

PATIENT
  Age: 70 Year
  Sex: Female

DRUGS (4)
  1. XALKORI [Suspect]
     Indication: LUNG NEOPLASM MALIGNANT
     Dosage: 250 MG, 2X/DAY
     Route: 048
     Dates: start: 201302
  2. LOVENOX [Concomitant]
     Indication: THROMBOSIS
     Dosage: UNK
  3. HYDROCHLOROTHIAZIDE/TRIAMTERENE [Concomitant]
     Dosage: UNK
  4. METHIMAZOLE [Concomitant]
     Dosage: UNK

REACTIONS (4)
  - Respiratory failure [Fatal]
  - Pulmonary embolism [Fatal]
  - Thrombosis [Unknown]
  - Dyspnoea [Unknown]
